FAERS Safety Report 23873065 (Version 1)
Quarter: 2024Q2

REPORT INFORMATION
  Report Type: Spontaneous
  Country: US (occurrence: None)
  Receive Date: 20240517
  Receipt Date: 20240517
  Transmission Date: 20240716
  Serious: Yes (unspecified)
  Sender: FDA-Public Use
  Company Number: None

PATIENT
  Age: 50 Year
  Sex: Male
  Weight: 55.3 kg

DRUGS (1)
  1. MEROPENEM [Suspect]
     Active Substance: MEROPENEM
     Indication: Osteomyelitis
     Dosage: FREQUENCY : 3 TIMES A DAY;?
     Route: 041
     Dates: start: 20240416, end: 20240517

REACTIONS (2)
  - Eosinophil count increased [None]
  - Therapy change [None]

NARRATIVE: CASE EVENT DATE: 20240516
